FAERS Safety Report 5266982-3 (Version None)
Quarter: 2007Q1

REPORT INFORMATION
  Report Type: 
  Country: None (occurrence: None)
  Receive Date: 20070316
  Receipt Date: 20070313
  Transmission Date: 20070707
  Serious: Yes (Other)
  Sender: FDA-Public Use
  Company Number: FR-BRISTOL-MYERS SQUIBB COMPANY-13676861

PATIENT
  Age: 58 Year
  Sex: Male

DRUGS (9)
  1. BARACLUDE [Suspect]
     Indication: HEPATITIS B
     Route: 048
     Dates: start: 20061001
  2. HEPSERA [Suspect]
  3. AMLODIPINE [Concomitant]
  4. ZESTRIL [Concomitant]
  5. ACARBOSE [Concomitant]
  6. DIAMICRON [Concomitant]
  7. KARDEGIC [Concomitant]
  8. OROCAL D3 [Concomitant]
     Route: 048
  9. EFFERALGAN CODEINE [Concomitant]

REACTIONS (2)
  - HYPOPHOSPHATAEMIA [None]
  - RENAL FAILURE [None]
